FAERS Safety Report 20739250 (Version 1)
Quarter: 2022Q2

REPORT INFORMATION
  Report Type: Spontaneous
  Country: HR (occurrence: HR)
  Receive Date: 20220422
  Receipt Date: 20220422
  Transmission Date: 20220721
  Serious: Yes (Other)
  Sender: FDA-Public Use
  Company Number: None

PATIENT

DRUGS (1)
  1. SUBOXONE [Suspect]
     Active Substance: BUPRENORPHINE HYDROCHLORIDE\NALOXONE HYDROCHLORIDE
     Indication: Product used for unknown indication
     Dosage: 7 DOSAGE FORM, ONE TIME DOSE
     Route: 060
     Dates: start: 20220306, end: 20220306

REACTIONS (4)
  - Suicide attempt [Recovered/Resolved]
  - Intentional overdose [Recovered/Resolved]
  - Somnolence [Recovered/Resolved]
  - Off label use [Recovered/Resolved]

NARRATIVE: CASE EVENT DATE: 20220306
